FAERS Safety Report 10010177 (Version 2)
Quarter: 2014Q1

REPORT INFORMATION
  Report Type: Spontaneous
  Country: US (occurrence: US)
  Receive Date: 20140313
  Receipt Date: 20140313
  Transmission Date: 20141002
  Serious: Yes (Hospitalization)
  Sender: FDA-Public Use
  Company Number: US-B.I. PHARMACEUTICALS,INC./RIDGEFIELD-2013-BI-30443BP

PATIENT
  Sex: Male
  Weight: 131.54 kg

DRUGS (12)
  1. PRADAXA [Suspect]
     Indication: ATRIAL FIBRILLATION
     Dosage: 300 MG
     Route: 048
     Dates: start: 20120709
  2. PRADAXA [Suspect]
     Route: 048
     Dates: start: 20121017, end: 20121106
  3. PRADAXA [Suspect]
     Route: 065
     Dates: start: 201211, end: 201211
  4. ALLOPURINOL [Concomitant]
     Indication: GOUT
     Dosage: 200 MG
     Route: 048
  5. CLONIDINE [Concomitant]
     Indication: HYPERTENSION
     Dosage: 0.6 MG
     Route: 048
  6. DOCUSATE [Concomitant]
     Dosage: 200 MG
     Route: 048
  7. NIFEDIPINE EXTENDED RELEASE [Concomitant]
     Indication: HYPERTENSION
     Dosage: 90 MG
     Route: 048
  8. HYDROCHLOROTHIAZIDE [Concomitant]
     Dosage: 25 MG
     Route: 048
  9. LEUPROLIDE [Concomitant]
     Route: 051
  10. OXYCODONE [Concomitant]
     Indication: PAIN
     Route: 048
  11. ALPRAZOLAM [Concomitant]
     Dosage: 4 MG
     Route: 048
  12. HYDROCODONE/ACETAMINOPHEN [Concomitant]
     Indication: PAIN
     Route: 048

REACTIONS (5)
  - Lower gastrointestinal haemorrhage [Recovered/Resolved]
  - Anaemia [Unknown]
  - Renal failure acute [Unknown]
  - Gastrointestinal haemorrhage [Recovered/Resolved]
  - Gastrointestinal haemorrhage [Recovered/Resolved]
